FAERS Safety Report 4498397-X (Version None)
Quarter: 2004Q4

REPORT INFORMATION
  Report Type: 
  Country: None (occurrence: None)
  Receive Date: 20041104
  Receipt Date: 20041015
  Transmission Date: 20050328
  Serious: Yes (Other)
  Sender: FDA-Public Use
  Company Number: SHI_00005_2004

PATIENT
  Age: 5 Year
  Sex: Male

DRUGS (1)
  1. KEIMAX [Suspect]
     Indication: COUGH
     Dosage: DF PO
     Route: 048

REACTIONS (2)
  - VIRAL INFECTION [None]
  - VISUAL ACUITY REDUCED [None]
